FAERS Safety Report 6202726-6 (Version None)
Quarter: 2009Q2

REPORT INFORMATION
  Report Type: 
  Country: None (occurrence: None)
  Receive Date: 20090526
  Receipt Date: 20090518
  Transmission Date: 20091009
  Serious: Yes (Other)
  Sender: FDA-Public Use
  Company Number: PHHY2009DE07623

PATIENT
  Age: 73 Year
  Sex: Male

DRUGS (6)
  1. DIOVAN HCT [Suspect]
     Indication: HYPERTENSION
     Dosage: 1-0-0/D
     Route: 048
     Dates: start: 19990101
  2. ANDANTE [Concomitant]
     Dosage: 1-0-0/D (3 MG)
     Route: 048
     Dates: start: 19990101
  3. ANDANTE [Concomitant]
     Dosage: 1-0-0/D (6 MG)
     Route: 048
  4. DYNACIL [Concomitant]
     Dosage: 1-0-0/D
     Route: 048
     Dates: start: 19990101
  5. INSULIN ACTRAPID [Concomitant]
  6. INSULIN PROTAPHANE [Concomitant]

REACTIONS (5)
  - BLOOD PRESSURE DECREASED [None]
  - BLOOD PRESSURE INADEQUATELY CONTROLLED [None]
  - BLOOD PRESSURE INCREASED [None]
  - EYE OPERATION [None]
  - RETINAL DISORDER [None]
